FAERS Safety Report 14067943 (Version 1)
Quarter: 2017Q4

REPORT INFORMATION
  Report Type: Spontaneous
  Country: HK (occurrence: IN)
  Receive Date: 20171010
  Receipt Date: 20171010
  Transmission Date: 20180321
  Serious: Yes (Hospitalization)
  Sender: FDA-Public Use
  Company Number: IN-UNICHEM LABORATORIES LIMITED-UCM201709-000234

PATIENT
  Age: 71 Year
  Sex: Female

DRUGS (4)
  1. DIVALPROEX SODIUM. [Suspect]
     Active Substance: DIVALPROEX SODIUM
     Indication: SEIZURE
     Route: 042
  2. NIMODIPINE. [Concomitant]
     Active Substance: NIMODIPINE
  3. DIVALPROEX SODIUM. [Suspect]
     Active Substance: DIVALPROEX SODIUM
     Dosage: 18 MG/KG/DAY
     Route: 042
  4. MIDAZOLAM [Suspect]
     Active Substance: MIDAZOLAM HYDROCHLORIDE
     Indication: SEIZURE
     Route: 042

REACTIONS (5)
  - Ammonia increased [Recovering/Resolving]
  - Depressed level of consciousness [Not Recovered/Not Resolved]
  - Brain oedema [Unknown]
  - Hyperammonaemic encephalopathy [Not Recovered/Not Resolved]
  - Lethargy [Not Recovered/Not Resolved]
